FAERS Safety Report 7202287-9 (Version None)
Quarter: 2010Q4

REPORT INFORMATION
  Report Type: 
  Country: None (occurrence: None)
  Receive Date: 20101220
  Receipt Date: 20101209
  Transmission Date: 20110411
  Serious: Yes (Hospitalization)
  Sender: FDA-Public Use
  Company Number: 2010-3587

PATIENT
  Age: 73 Year
  Sex: Female
  Weight: 74.4 kg

DRUGS (10)
  1. TIGAN [Suspect]
     Indication: PROPHYLAXIS OF NAUSEA AND VOMITING
     Dosage: (300 MG,), ORAL
     Route: 048
     Dates: start: 20100822, end: 20101001
  2. APOKYN [Suspect]
     Indication: PARKINSON'S DISEASE
     Dosage: (,3-5 TIMES PER DAY), SUBCUTANEOUS
     Route: 058
     Dates: start: 20100825, end: 20101008
  3. ENALAPRIL MALEATE [Concomitant]
  4. LOVASTATIN [Concomitant]
  5. SYNTHROID [Concomitant]
  6. NEURONTIN [Concomitant]
  7. LORAZEPAM [Concomitant]
  8. SINEMET [Concomitant]
  9. ACETAMINOPHEN [Concomitant]
  10. APAP W/ CODEINE [Concomitant]

REACTIONS (7)
  - ABDOMINAL PAIN [None]
  - ATELECTASIS [None]
  - CEREBRAL ATROPHY [None]
  - CHOLELITHIASIS [None]
  - FALL [None]
  - INJURY [None]
  - LIVER DISORDER [None]
